FAERS Safety Report 7004241-9 (Version None)
Quarter: 2010Q3

REPORT INFORMATION
  Report Type: 
  Country: None (occurrence: None)
  Receive Date: 20100920
  Receipt Date: 20100225
  Transmission Date: 20110219
  Serious: No
  Sender: FDA-Public Use
  Company Number: US-WYE-H13880810

PATIENT
  Sex: Female

DRUGS (6)
  1. PRISTIQ [Suspect]
     Indication: DEPRESSION
     Route: 048
     Dates: start: 20090401
  2. TEGRETOL [Concomitant]
  3. TOPAMAX [Concomitant]
  4. NEURONTIN [Concomitant]
  5. MELATONIN [Concomitant]
  6. PRILOSEC [Concomitant]

REACTIONS (4)
  - DYSPHAGIA [None]
  - DYSPNOEA [None]
  - OESOPHAGEAL HYPOMOTILITY [None]
  - REGURGITATION [None]
